FAERS Safety Report 23171509 (Version 2)
Quarter: 2024Q2

REPORT INFORMATION
  Report Type: Spontaneous
  Country: US (occurrence: US)
  Receive Date: 20231110
  Receipt Date: 20240502
  Transmission Date: 20240716
  Serious: Yes (Other)
  Sender: FDA-Public Use
  Company Number: US-BEH-2023165211

PATIENT
  Age: 3 Year
  Sex: Male

DRUGS (19)
  1. IDELVION [Suspect]
     Active Substance: COAGULATION FACTOR IX RECOMBINANT HUMAN
     Indication: Factor IX deficiency
     Dosage: 1602-1780 UNITS, QOW (ONCE EVERY 14 DAYS)
     Route: 042
     Dates: start: 20230901
  2. IDELVION [Suspect]
     Active Substance: COAGULATION FACTOR IX RECOMBINANT HUMAN
     Indication: Factor IX deficiency
     Dosage: 1602-1780 UNITS, QOW (ONCE EVERY 14 DAYS)
     Route: 042
     Dates: start: 20230901
  3. IDELVION [Suspect]
     Active Substance: COAGULATION FACTOR IX RECOMBINANT HUMAN
     Indication: Haemorrhage
     Dosage: 1602-1780 UNITS, PRN FOR MAJOR OR JOINT BLEEDS
     Route: 042
     Dates: start: 202309
  4. IDELVION [Suspect]
     Active Substance: COAGULATION FACTOR IX RECOMBINANT HUMAN
     Indication: Haemorrhage
     Dosage: 1602-1780 UNITS, PRN FOR MAJOR OR JOINT BLEEDS
     Route: 042
     Dates: start: 202309
  5. IDELVION [Suspect]
     Active Substance: COAGULATION FACTOR IX RECOMBINANT HUMAN
     Indication: Prophylaxis
     Dosage: 890-1068 UNITS, PRN FOR MINOR BLEED
     Route: 042
     Dates: start: 202309
  6. IDELVION [Suspect]
     Active Substance: COAGULATION FACTOR IX RECOMBINANT HUMAN
     Indication: Prophylaxis
     Dosage: 890-1068 UNITS, PRN FOR MINOR BLEED
     Route: 042
     Dates: start: 202309
  7. IDELVION [Suspect]
     Active Substance: COAGULATION FACTOR IX RECOMBINANT HUMAN
     Indication: Haemarthrosis
     Dosage: 1 DOSAGE FORM
     Route: 065
     Dates: start: 20231030
  8. IDELVION [Suspect]
     Active Substance: COAGULATION FACTOR IX RECOMBINANT HUMAN
     Indication: Haemarthrosis
     Dosage: 1 DOSAGE FORM
     Route: 065
     Dates: start: 20231030
  9. IDELVION [Suspect]
     Active Substance: COAGULATION FACTOR IX RECOMBINANT HUMAN
     Dosage: 1602-1780 IU, QOW
     Route: 042
     Dates: start: 202011
  10. IDELVION [Suspect]
     Active Substance: COAGULATION FACTOR IX RECOMBINANT HUMAN
     Dosage: 1602-1780 IU, QOW
     Route: 042
     Dates: start: 202011
  11. IDELVION [Suspect]
     Active Substance: COAGULATION FACTOR IX RECOMBINANT HUMAN
     Dosage: 1602-1780 IU, PRN FOR MAJOR OR JOINT BLEEDS
     Route: 042
     Dates: start: 202011
  12. IDELVION [Suspect]
     Active Substance: COAGULATION FACTOR IX RECOMBINANT HUMAN
     Dosage: 1602-1780 IU, PRN FOR MAJOR OR JOINT BLEEDS
     Route: 042
     Dates: start: 202011
  13. IDELVION [Suspect]
     Active Substance: COAGULATION FACTOR IX RECOMBINANT HUMAN
     Dosage: 890-1068 IU, PRN FOR MINOR BLEED
     Route: 042
     Dates: start: 202011
  14. IDELVION [Suspect]
     Active Substance: COAGULATION FACTOR IX RECOMBINANT HUMAN
     Dosage: 890-1068 IU, PRN FOR MINOR BLEED
     Route: 042
     Dates: start: 202011
  15. IDELVION [Suspect]
     Active Substance: COAGULATION FACTOR IX RECOMBINANT HUMAN
     Dosage: 1 DF
     Route: 065
  16. IDELVION [Suspect]
     Active Substance: COAGULATION FACTOR IX RECOMBINANT HUMAN
     Dosage: 1 DF
     Route: 065
  17. IDELVION [Suspect]
     Active Substance: COAGULATION FACTOR IX RECOMBINANT HUMAN
     Dosage: 1 DF, PRN
     Route: 065
  18. IDELVION [Suspect]
     Active Substance: COAGULATION FACTOR IX RECOMBINANT HUMAN
     Dosage: 1 DF, PRN
     Route: 065
  19. AMINOCAPROIC ACID [Concomitant]
     Active Substance: AMINOCAPROIC ACID
     Route: 048

REACTIONS (3)
  - Haemorrhage [Recovered/Resolved]
  - Haemarthrosis [Not Recovered/Not Resolved]
  - Fall [Unknown]

NARRATIVE: CASE EVENT DATE: 20231030
